FAERS Safety Report 9715814 (Version 8)
Quarter: 2019Q1

REPORT INFORMATION
  Report Type: Spontaneous
  Country: JP (occurrence: JP)
  Receive Date: 20131127
  Receipt Date: 20190111
  Transmission Date: 20190418
  Serious: Yes (Hospitalization, Other)
  Sender: FDA-Public Use
  Company Number: JP-ROCHE-1309194

PATIENT
  Age: 78 Year
  Sex: Male
  Weight: 49 kg

DRUGS (18)
  1. PLAVIX [Concomitant]
     Active Substance: CLOPIDOGREL BISULFATE
  2. LUCENTIS [Suspect]
     Active Substance: RANIBIZUMAB
     Indication: NEOVASCULAR AGE-RELATED MACULAR DEGENERATION
     Route: 050
     Dates: start: 20120907
  3. SEIBULE [Concomitant]
     Active Substance: MIGLITOL
  4. BROMFENAC [Concomitant]
     Active Substance: BROMFENAC SODIUM
     Indication: AGE-RELATED MACULAR DEGENERATION
     Dosage: 4 DF, UNK
     Route: 047
     Dates: start: 20120904, end: 20131102
  5. LIPITOR [Concomitant]
     Active Substance: ATORVASTATIN CALCIUM
  6. MOXIFLOXACIN HYDROCHLORIDE. [Concomitant]
     Active Substance: MOXIFLOXACIN HYDROCHLORIDE
     Route: 065
     Dates: start: 20130831, end: 20131011
  7. LIPITOR [Concomitant]
     Active Substance: ATORVASTATIN CALCIUM
     Indication: AGE-RELATED MACULAR DEGENERATION
     Dosage: 10 MG, UNK
     Route: 048
  8. RINDERON V [Concomitant]
     Active Substance: BETAMETHASONE VALERATE
     Indication: PROPHYLAXIS
     Dosage: 2 DF, UNK
     Route: 047
     Dates: start: 20130904, end: 20131011
  9. CATACLOT [Concomitant]
  10. SUREPOST [Concomitant]
     Active Substance: REPAGLINIDE
     Indication: AGE-RELATED MACULAR DEGENERATION
     Dosage: 0.5 MG, UNK
     Route: 048
  11. LUCENTIS [Suspect]
     Active Substance: RANIBIZUMAB
     Route: 050
     Dates: start: 20121015
  12. BETAMETHASONE. [Concomitant]
     Active Substance: BETAMETHASONE
     Route: 065
     Dates: start: 20130904, end: 20131011
  13. GLUCOSE [Concomitant]
     Active Substance: DEXTROSE
     Route: 065
  14. LUCENTIS [Suspect]
     Active Substance: RANIBIZUMAB
     Route: 050
     Dates: start: 20130903, end: 20130903
  15. SEIBULE [Concomitant]
     Active Substance: MIGLITOL
     Indication: AGE-RELATED MACULAR DEGENERATION
     Dosage: 150 MG, UNK
     Route: 048
  16. BROMFENAC SODIUM [Concomitant]
     Active Substance: BROMFENAC SODIUM
     Route: 065
     Dates: start: 20120904, end: 20131102
  17. REPAGLINIDE. [Concomitant]
     Active Substance: REPAGLINIDE
  18. VEGAMOX [Concomitant]
     Active Substance: MOXIFLOXACIN HYDROCHLORIDE
     Indication: PROPHYLAXIS
     Dosage: 4 DF, UNK
     Route: 065
     Dates: start: 20130831, end: 20131011

REACTIONS (9)
  - Detachment of retinal pigment epithelium [Unknown]
  - Serous retinal detachment [Unknown]
  - Pallor [Unknown]
  - Cerebral infarction [Unknown]
  - Choroidal neovascularisation [Unknown]
  - Blood glucose decreased [Unknown]
  - Cataract [Unknown]
  - Dysphonia [Not Recovered/Not Resolved]
  - Brain stem infarction [Recovering/Resolving]

NARRATIVE: CASE EVENT DATE: 20130801
